FAERS Safety Report 25611101 (Version 1)
Quarter: 2025Q3

REPORT INFORMATION
  Report Type: Report from Study
  Country: US (occurrence: US)
  Receive Date: 20250728
  Receipt Date: 20250728
  Transmission Date: 20251021
  Serious: Yes (Hospitalization, Other)
  Sender: ALEXION PHARMACEUTICALS
  Company Number: US-AstraZeneca-CH-00916320A

PATIENT
  Age: 59 Year
  Sex: Male

DRUGS (2)
  1. ACALABRUTINIB [Suspect]
     Active Substance: ACALABRUTINIB
     Indication: Chronic lymphocytic leukaemia
     Dosage: 100 MILLIGRAM, BID
     Dates: start: 20240829
  2. BRUKINSA [Concomitant]
     Active Substance: ZANUBRUTINIB
     Route: 065

REACTIONS (3)
  - Musculoskeletal disorder [Unknown]
  - Inability to afford medication [Unknown]
  - Fall [Unknown]
